FAERS Safety Report 7403620-5 (Version None)
Quarter: 2011Q2

REPORT INFORMATION
  Report Type: 
  Country: None (occurrence: None)
  Receive Date: 20110408
  Receipt Date: 20110405
  Transmission Date: 20111010
  Serious: Yes (Hospitalization)
  Sender: FDA-Public Use
  Company Number: JP-PFIZER INC-2011054996

PATIENT
  Age: 74 Year
  Sex: Male
  Weight: 58.3 kg

DRUGS (24)
  1. NERIPROCT [Concomitant]
     Indication: HAEMORRHOIDS
     Dosage: 1 DF
     Route: 054
     Dates: end: 20110311
  2. TAICEZOLIN [Concomitant]
     Indication: INFECTION PROPHYLAXIS
     Dosage: 1.0 G, 3X/DAY
     Route: 042
     Dates: start: 20110307, end: 20110311
  3. HALCION [Concomitant]
     Indication: INSOMNIA
     Dosage: 0.25 MG, 1X/DAY
     Route: 048
     Dates: end: 20110311
  4. PLETAL [Concomitant]
     Indication: CEREBRAL INFARCTION
     Dosage: 100 MG, 2X/DAY
     Route: 048
     Dates: end: 20110311
  5. DIOVAN [Concomitant]
     Indication: HYPERTENSION
     Dosage: 80 MG, 1X/DAY
     Route: 048
     Dates: end: 20110311
  6. SELBEX [Concomitant]
     Indication: GASTRITIS
     Dosage: 0.5 G, 3X/DAY
     Route: 048
     Dates: end: 20110311
  7. MAINTATE [Concomitant]
     Indication: HYPERTENSION
     Dosage: 5 MG, 1X/DAY
     Route: 048
     Dates: end: 20110311
  8. LUPRAC [Concomitant]
     Indication: OEDEMA
     Dosage: 8 MG, 2X/DAY
     Route: 048
     Dates: end: 20110311
  9. GELATIN [Suspect]
     Indication: HEPATIC NEOPLASM MALIGNANT NON-RESECTABLE
     Dosage: UNK
     Route: 013
     Dates: start: 20100226
  10. LIPIODOL [Concomitant]
     Dosage: 5 ML, UNK
     Dates: start: 20110307
  11. METHYCOBAL [Concomitant]
     Indication: CEREBRAL INFARCTION
     Dosage: 500 UG, 3X/DAY
     Route: 048
     Dates: end: 20110311
  12. PENTAZOCINE LACTATE [Concomitant]
     Indication: CATHETER SITE PAIN
     Dosage: 15 MG, AS NEEDED
     Route: 030
     Dates: start: 20110307, end: 20110307
  13. VOLTAREN [Concomitant]
     Indication: PYREXIA
     Dosage: 25 MG, AS NEEDED
     Route: 054
     Dates: start: 20110308, end: 20110311
  14. EPIRUBICIN HYDROCHLORIDE [Suspect]
     Dosage: 50 MG, UNK
     Route: 013
     Dates: start: 20110307
  15. URSO 250 [Concomitant]
     Indication: HEPATIC NEOPLASM MALIGNANT RECURRENT
     Dosage: 200 MG, 3X/DAY
     Route: 048
     Dates: end: 20110311
  16. JUVELA NICOTINATE [Concomitant]
     Indication: CEREBRAL INFARCTION
     Dosage: 100 MG, 3X/DAY
     Route: 048
     Dates: end: 20110311
  17. EPIRUBICIN HYDROCHLORIDE [Suspect]
     Indication: HEPATIC NEOPLASM MALIGNANT NON-RESECTABLE
     Dosage: UNK
     Route: 013
     Dates: start: 20100226
  18. GELATIN [Suspect]
     Dosage: 1 UNK, UNK
     Route: 013
     Dates: start: 20110307
  19. LIPIODOL [Concomitant]
     Dosage: UNK
     Route: 013
     Dates: start: 20100226
  20. PA [Concomitant]
     Indication: PROPHYLAXIS
     Dosage: 1 UNK, UNK
     Route: 048
     Dates: end: 20110311
  21. DEPAS [Concomitant]
     Indication: INSOMNIA
     Dosage: 0.5 MG, 1X/DAY
     Route: 048
     Dates: end: 20110311
  22. PARIET [Concomitant]
     Indication: GASTRITIS
     Dosage: 10 MG, 1X/DAY
     Route: 048
     Dates: end: 20110311
  23. NORVASC [Concomitant]
     Indication: HYPERTENSION
     Dosage: 5 MG, 1X/DAY
     Route: 048
     Dates: end: 20110311
  24. GRANISETRON [Concomitant]
     Indication: PROPHYLAXIS OF NAUSEA AND VOMITING
     Dosage: 3 MG, UNK
     Route: 041
     Dates: start: 20110307, end: 20110307

REACTIONS (1)
  - CHOLECYSTITIS ACUTE [None]
